FAERS Safety Report 5055535-8 (Version None)
Quarter: 2006Q3

REPORT INFORMATION
  Report Type: 
  Country: None (occurrence: None)
  Receive Date: 20060717
  Receipt Date: 20060717
  Transmission Date: 20061208
  Serious: Yes (Life-Threatening, Hospitalization, Disabling)
  Sender: FDA-Public Use
  Company Number: None

PATIENT
  Age: 50 Year
  Sex: Male
  Weight: 103 kg

DRUGS (2)
  1. METHADONE HCL [Suspect]
     Indication: DRUG DEPENDENCE
     Dosage: 150MG  QD  PO
     Route: 048
     Dates: start: 20030109, end: 20060606
  2. BACLOFEN [Suspect]
     Indication: MYALGIA
     Dosage: 20MG  QID  PO
     Route: 048
     Dates: start: 20050301, end: 20060606

REACTIONS (1)
  - LOSS OF CONSCIOUSNESS [None]
